FAERS Safety Report 5092492-2 (Version None)
Quarter: 2006Q3

REPORT INFORMATION
  Report Type: 
  Country: None (occurrence: None)
  Receive Date: 20060824
  Receipt Date: 20060810
  Transmission Date: 20061208
  Serious: No
  Sender: FDA-Public Use
  Company Number: WSDF_00568

PATIENT
  Age: 22 Year
  Sex: Male

DRUGS (3)
  1. WINRHO SDF [Suspect]
     Indication: IDIOPATHIC THROMBOCYTOPENIC PURPURA
  2. TYLENOL [Concomitant]
  3. BENADRYL [Concomitant]

REACTIONS (6)
  - ANAEMIA [None]
  - CHILLS [None]
  - CHROMATURIA [None]
  - DIZZINESS [None]
  - PAIN [None]
  - VOMITING [None]
